FAERS Safety Report 6120506-7 (Version None)
Quarter: 2009Q1

REPORT INFORMATION
  Report Type: 
  Country: None (occurrence: None)
  Receive Date: 20090316
  Receipt Date: 20090316
  Transmission Date: 20090719
  Serious: Yes (Death)
  Sender: FDA-Public Use
  Company Number: None

PATIENT
  Sex: Male
  Weight: 60.782 kg

DRUGS (2)
  1. HALDOL [Suspect]
     Indication: ALCOHOL WITHDRAWAL SYNDROME
     Dosage: 1/27/09 - 5 MG ONETIME IV 2/3-2/7/09 - 2 MG EVERY 8 HRS IV
     Route: 042
     Dates: start: 20090203, end: 20090207
  2. HALDOL [Suspect]
     Indication: ALCOHOL WITHDRAWAL SYNDROME
     Dosage: 1/27/09 - 5 MG ONETIME IV 2/3-2/7/09 - 2 MG EVERY 8 HRS IV
     Route: 042
     Dates: start: 20090127

REACTIONS (2)
  - CONTRAINDICATION TO MEDICAL TREATMENT [None]
  - NEUROLEPTIC MALIGNANT SYNDROME [None]
